FAERS Safety Report 13786398 (Version 2)
Quarter: 2018Q1

REPORT INFORMATION
  Report Type: Spontaneous
  Country: US (occurrence: US)
  Receive Date: 20170725
  Receipt Date: 20180109
  Transmission Date: 20180508
  Serious: No
  Sender: FDA-Public Use
  Company Number: US-AMGEN-USASP2017109440

PATIENT
  Age: 51 Year
  Sex: Female

DRUGS (2)
  1. HUMIRA [Concomitant]
     Active Substance: ADALIMUMAB
     Dosage: UNK
  2. ENBREL [Suspect]
     Active Substance: ETANERCEPT
     Indication: RHEUMATOID ARTHRITIS
     Dosage: 50 MG, QWK
     Route: 058
     Dates: start: 20170405

REACTIONS (7)
  - Urinary tract infection [Unknown]
  - Injection site erythema [Unknown]
  - Injection site pruritus [Unknown]
  - Injection site warmth [Unknown]
  - Injection site haemorrhage [Unknown]
  - Injection site rash [Unknown]
  - Injection site inflammation [Unknown]

NARRATIVE: CASE EVENT DATE: 2017
